FAERS Safety Report 8120575-9 (Version None)
Quarter: 2012Q1

REPORT INFORMATION
  Report Type: 
  Country: None (occurrence: None)
  Receive Date: 20120207
  Receipt Date: 20120130
  Transmission Date: 20120608
  Serious: Yes (Hospitalization)
  Sender: FDA-Public Use
  Company Number: FR-PFIZER INC-2009286842

PATIENT
  Age: 73 Year
  Sex: Female

DRUGS (8)
  1. METFORMIN HCL [Suspect]
     Dosage: 850 MG, 3X/DAY
     Route: 048
     Dates: end: 20090510
  2. BISOPROLOL FUMARATE [Concomitant]
     Dosage: UNK
     Route: 048
  3. FUROSEMIDE [Suspect]
     Dosage: 40 MG, 1X/DAY
     Route: 048
     Dates: end: 20090510
  4. ALDACTONE [Suspect]
     Dosage: 25 MG, 1X/DAY
     Route: 048
     Dates: end: 20090510
  5. RAMIPRIL [Suspect]
     Dosage: 5 MG, 1X/DAY
     Route: 048
     Dates: end: 20090510
  6. NEXIUM [Concomitant]
     Dosage: UNK
     Route: 048
  7. DIAMOX SRC [Suspect]
     Dosage: 250 MG, 1X/DAY
     Route: 048
     Dates: end: 20090510
  8. LEVOTHYROXINE SODIUM [Concomitant]
     Dosage: UNK
     Route: 048

REACTIONS (2)
  - HYPERKALAEMIA [None]
  - RENAL FAILURE ACUTE [None]
